FAERS Safety Report 24332527 (Version 1)
Quarter: 2024Q3

REPORT INFORMATION
  Report Type: Spontaneous
  Country: BE (occurrence: BE)
  Receive Date: 20240918
  Receipt Date: 20240918
  Transmission Date: 20241017
  Serious: Yes (Life-Threatening)
  Sender: MYLAN
  Company Number: BE-MYLANLABS-2024M1084262

PATIENT
  Age: 46 Year
  Sex: Female

DRUGS (3)
  1. EPINEPHRINE [Suspect]
     Active Substance: EPINEPHRINE
     Indication: Anaphylactic reaction
     Dosage: 0.5 MILLIGRAM, INTRAVENOUS ADMINISTRATION OF ADRENALINE INSTEAD OF INTRAMUSCULAR
     Route: 042
  2. METHYLPREDNISOLONE [Concomitant]
     Active Substance: METHYLPREDNISOLONE
     Indication: Anaphylactic reaction
     Dosage: 125 MILLIGRAM
     Route: 042
  3. PROMETHAZINE [Concomitant]
     Active Substance: PROMETHAZINE HYDROCHLORIDE
     Indication: Anaphylactic reaction
     Dosage: 25 MILLIGRAM
     Route: 030

REACTIONS (2)
  - Stress cardiomyopathy [Recovered/Resolved]
  - Incorrect route of product administration [Recovered/Resolved]
